FAERS Safety Report 9372240 (Version 1)
Quarter: 2013Q2

REPORT INFORMATION
  Report Type: Spontaneous
  Country: ES (occurrence: ES)
  Receive Date: 20130627
  Receipt Date: 20130627
  Transmission Date: 20140414
  Serious: Yes (Other)
  Sender: FDA-Public Use
  Company Number: ES-BAYER-2013-076519

PATIENT
  Sex: Male

DRUGS (1)
  1. GADOVIST [Suspect]
     Indication: HEAD INJURY
     Dosage: 7.5 ML, ONCE
     Dates: start: 20130619, end: 20130619

REACTIONS (3)
  - Dizziness [Recovering/Resolving]
  - Throat irritation [Recovering/Resolving]
  - Dyspnoea [Recovering/Resolving]
